FAERS Safety Report 17980879 (Version 2)
Quarter: 2020Q3

REPORT INFORMATION
  Report Type: Spontaneous
  Country: ES (occurrence: ES)
  Receive Date: 20200704
  Receipt Date: 20200728
  Transmission Date: 20201103
  Serious: Yes (Life-Threatening, Hospitalization, Other)
  Sender: FDA-Public Use
  Company Number: ES-MACLEODS PHARMACEUTICALS US LTD-MAC2020027041

PATIENT

DRUGS (5)
  1. LIDOCAINE. [Suspect]
     Active Substance: LIDOCAINE
     Indication: INDUCTION OF ANAESTHESIA
     Dosage: 40 MILLIGRAM, SINGLE
     Route: 042
  2. PROPOFOL. [Concomitant]
     Active Substance: PROPOFOL
     Indication: INDUCTION OF ANAESTHESIA
     Dosage: 130 MILLIGRAM, SINGLE
     Route: 042
  3. AMOXICILLIN/ CLAVULANIC ACID [Concomitant]
     Active Substance: AMOXICILLIN\CLAVULANIC ACID
     Indication: LOCAL ANAESTHESIA
     Dosage: 2 GRAM, SINGLE
     Route: 042
  4. SUCCINYLCHOLINE CHLORIDE. [Concomitant]
     Active Substance: SUCCINYLCHOLINE CHLORIDE
     Indication: INDUCTION OF ANAESTHESIA
     Dosage: 100 MILLIGRAM, SINGLE
     Route: 042
  5. FENTANYL. [Concomitant]
     Active Substance: FENTANYL
     Indication: INDUCTION OF ANAESTHESIA
     Dosage: 0.15 MILLIGRAM, SINGLE
     Route: 042

REACTIONS (2)
  - Drug hypersensitivity [Recovered/Resolved]
  - Anaphylactic reaction [Recovered/Resolved]
